FAERS Safety Report 6491005-8 (Version None)
Quarter: 2009Q4

REPORT INFORMATION
  Report Type: 
  Country: None (occurrence: None)
  Receive Date: 20091211
  Receipt Date: 20091207
  Transmission Date: 20100525
  Serious: Yes (Hospitalization)
  Sender: FDA-Public Use
  Company Number: AU-ROCHE-673333

PATIENT
  Sex: Female
  Weight: 44 kg

DRUGS (4)
  1. BEVACIZUMAB [Suspect]
     Indication: BREAST CANCER
     Dosage: DOSE LEVEL: 15 MG/KG., FORM REPORTED AS VIALS
     Route: 042
     Dates: start: 20091124
  2. TRASTUZUMAB [Suspect]
     Indication: BREAST CANCER
     Dosage: DOSE LEVEL: 6 MG/KG, FORM: VIAL
     Route: 042
     Dates: start: 20091124
  3. CARBOPLATIN [Suspect]
     Indication: BREAST CANCER
     Dosage: DOSE LEVEL: 6 AUC, FORM: VIAL
     Route: 042
     Dates: start: 20091124
  4. DOCETAXEL [Suspect]
     Indication: BREAST CANCER
     Dosage: DOSE LEVEL: 75 MG/M2, FORM: VIAL
     Route: 042
     Dates: start: 20091124

REACTIONS (1)
  - FEBRILE NEUTROPENIA [None]
